FAERS Safety Report 25457347 (Version 1)
Quarter: 2025Q2

REPORT INFORMATION
  Report Type: Spontaneous
  Country: DK (occurrence: DK)
  Receive Date: 20250619
  Receipt Date: 20250619
  Transmission Date: 20250716
  Serious: Yes (Other)
  Sender: ELI LILLY AND COMPANY
  Company Number: DK-ELI_LILLY_AND_COMPANY-DK202506015303

PATIENT
  Age: 57 Year
  Sex: Male

DRUGS (1)
  1. LEBRIKIZUMAB [Suspect]
     Active Substance: LEBRIKIZUMAB
     Indication: Dermatitis atopic
     Dosage: 500 MG, WEEKLY (1/W)
     Route: 058
     Dates: start: 20241114, end: 20250320

REACTIONS (3)
  - Ocular pemphigoid [Recovering/Resolving]
  - Eye inflammation [Recovering/Resolving]
  - Photophobia [Recovering/Resolving]

NARRATIVE: CASE EVENT DATE: 20250101
